FAERS Safety Report 16354397 (Version 1)
Quarter: 2019Q2

REPORT INFORMATION
  Report Type: Report from Study
  Country: CN (occurrence: CN)
  Receive Date: 20190524
  Receipt Date: 20190524
  Transmission Date: 20190711
  Serious: Yes (Other)
  Sender: FDA-Public Use
  Company Number: CN-BRISTOL-MYERS SQUIBB COMPANY-BMS-2019-047877

PATIENT

DRUGS (1)
  1. NIVOLUMAB [Suspect]
     Active Substance: NIVOLUMAB
     Indication: RENAL CELL CARCINOMA
     Dosage: 2.8 MILLIGRAM/KILOGRAM
     Route: 042
     Dates: start: 20181113

REACTIONS (3)
  - Paralysis [Unknown]
  - Gait inability [Unknown]
  - Cerebral infarction [Unknown]
